FAERS Safety Report 4514882-6 (Version None)
Quarter: 2004Q4

REPORT INFORMATION
  Report Type: 
  Country: None (occurrence: None)
  Receive Date: 20041126
  Receipt Date: 20041110
  Transmission Date: 20050328
  Serious: Yes (Other)
  Sender: FDA-Public Use
  Company Number: 2004092362

PATIENT
  Age: 36 Year
  Sex: Male
  Weight: 90 kg

DRUGS (2)
  1. GABAPENTIN [Suspect]
     Indication: BIPOLAR I DISORDER
     Dosage: ORAL
     Route: 048
     Dates: start: 20020401
  2. NEURONTIN [Suspect]
     Indication: BIPOLAR I DISORDER
     Route: 065
     Dates: start: 20040916, end: 20041001

REACTIONS (2)
  - DIABETES INSIPIDUS [None]
  - PHARMACEUTICAL PRODUCT COMPLAINT [None]
